FAERS Safety Report 5141030-4 (Version None)
Quarter: 2006Q4

REPORT INFORMATION
  Report Type: 
  Country: None (occurrence: None)
  Receive Date: 20061026
  Receipt Date: 20061013
  Transmission Date: 20070319
  Serious: Yes (Life-Threatening, Hospitalization)
  Sender: FDA-Public Use
  Company Number: 2006EU002824

PATIENT
  Age: 45 Year
  Sex: Male

DRUGS (7)
  1. FK506(TRACROLIMUS) TABLET [Suspect]
     Indication: LIVER TRANSPLANT
     Dosage: SEE IMAGE
     Route: 042
     Dates: start: 20041107, end: 20041109
  2. FK506(TRACROLIMUS) TABLET [Suspect]
     Indication: LIVER TRANSPLANT
     Dosage: SEE IMAGE
     Route: 042
     Dates: start: 20041110, end: 20051121
  3. METHYLPREDNISOLONE [Suspect]
     Indication: LIVER TRANSPLANT
     Dosage: BID
     Dates: start: 20041107, end: 20050225
  4. PREDNISOLONE [Suspect]
     Indication: LIVER TRANSPLANT
     Dosage: 500 MG, UID/QD
     Dates: start: 20041117, end: 20041120
  5. ALDACTONE [Concomitant]
  6. LASIX [Concomitant]
  7. KANAVIT (PHYTOMENADIONE) [Concomitant]

REACTIONS (1)
  - ENCEPHALITIS CYTOMEGALOVIRUS [None]
